FAERS Safety Report 23173473 (Version 1)
Quarter: 2023Q4

REPORT INFORMATION
  Report Type: Report from Study
  Country: US (occurrence: US)
  Receive Date: 20231111
  Receipt Date: 20231111
  Transmission Date: 20240110
  Serious: Yes (Hospitalization, Other)
  Sender: FDA-Public Use
  Company Number: US-ABBVIE-5421218

PATIENT
  Sex: Male

DRUGS (1)
  1. VENCLEXTA [Suspect]
     Active Substance: VENETOCLAX
     Indication: Acute myeloid leukaemia
     Dosage: 50MG AND 10 MG TABLET, TAKE ONE 50MG TABLET ALONG WITH TWO 10MG TABLETS (70MG TOTAL) BY MOUTH DAILY
     Route: 048

REACTIONS (2)
  - Hospice care [Unknown]
  - Off label use [Unknown]
